FAERS Safety Report 13875190 (Version 1)
Quarter: 2017Q3

REPORT INFORMATION
  Report Type: Report from Study
  Country: CA (occurrence: CA)
  Receive Date: 20170816
  Receipt Date: 20170816
  Transmission Date: 20171127
  Serious: Yes (Hospitalization)
  Sender: FDA-Public Use
  Company Number: PHHY2016CA024021

PATIENT
  Age: 66 Year
  Sex: Male

DRUGS (1)
  1. SANDOSTATIN LAR DEPOT [Suspect]
     Active Substance: OCTREOTIDE ACETATE
     Indication: CARCINOID TUMOUR
     Dosage: 30 MG, QMO EVERY 4 WEEKS
     Route: 030

REACTIONS (12)
  - Bronchitis [Unknown]
  - Back pain [Recovering/Resolving]
  - Sleep disorder [Unknown]
  - Constipation [Recovering/Resolving]
  - Decreased appetite [Unknown]
  - Musculoskeletal pain [Unknown]
  - Arthritis [Unknown]
  - Arthralgia [Unknown]
  - Respiratory distress [Unknown]
  - Blood pressure systolic increased [Unknown]
  - Weight decreased [Unknown]
  - Pain in extremity [Unknown]

NARRATIVE: CASE EVENT DATE: 20160218
